FAERS Safety Report 4778596-X (Version None)
Quarter: 2005Q3

REPORT INFORMATION
  Report Type: 
  Country: None (occurrence: None)
  Receive Date: 20050926
  Receipt Date: 20050912
  Transmission Date: 20060218
  Serious: Yes (Other)
  Sender: FDA-Public Use
  Company Number: 2005AC01364

PATIENT
  Age: 67 Year
  Sex: Male

DRUGS (9)
  1. PROPOFOL [Suspect]
     Indication: GENERAL ANAESTHESIA
     Route: 042
  2. ATORVASTATIN [Concomitant]
  3. HYDROCODONE [Concomitant]
  4. IBUPROFEN [Concomitant]
  5. CALCIUM GLUCONATE [Concomitant]
  6. FENTANYL [Concomitant]
  7. ISOFLURANE [Concomitant]
     Indication: ANAESTHESIA
  8. NITROUS OXIDE [Concomitant]
     Indication: ANAESTHESIA
     Dosage: 50:50 % MIXTURE WITH OXYGEN
  9. OXYGEN [Concomitant]
     Indication: ANAESTHESIA
     Dosage: 50:50 % MIXTURE WITH NITROUS OXIDE

REACTIONS (2)
  - DISORIENTATION [None]
  - GLOBAL AMNESIA [None]
